FAERS Safety Report 20216186 (Version 1)
Quarter: 2021Q4

REPORT INFORMATION
  Report Type: Spontaneous
  Country: US (occurrence: None)
  Receive Date: 20211221
  Receipt Date: 20211221
  Transmission Date: 20220303
  Serious: Yes (Death)
  Sender: FDA-Public Use
  Company Number: None

PATIENT
  Age: 79 Year
  Sex: Male

DRUGS (1)
  1. LUPRON DEPOT [Suspect]
     Active Substance: LEUPROLIDE ACETATE
     Indication: Thrombocytopenia
     Dosage: OTHER FREQUENCY : OTHER;?
     Route: 030
     Dates: start: 202107

REACTIONS (1)
  - Death [None]

NARRATIVE: CASE EVENT DATE: 20211221
